FAERS Safety Report 7878643-2 (Version None)
Quarter: 2011Q4

REPORT INFORMATION
  Report Type: 
  Country: None (occurrence: None)
  Receive Date: 20111101
  Receipt Date: 20111025
  Transmission Date: 20120403
  Serious: Yes (Hospitalization)
  Sender: FDA-Public Use
  Company Number: JP-CEPHALON-2011005064

PATIENT
  Age: 65 Year
  Sex: Male
  Weight: 66 kg

DRUGS (8)
  1. LAFUTIDINE [Concomitant]
     Dates: start: 20110829
  2. ALLOPURINOL [Concomitant]
     Dates: start: 20111026
  3. ACYCLOVIR [Concomitant]
     Dates: start: 20110804
  4. VALSARTAN [Concomitant]
     Dates: start: 20110928
  5. SULFAMETHOXAZOLE AND TRIMETHOPRIM [Concomitant]
     Dates: start: 20110804
  6. BENDAMUSTINE HCL [Suspect]
     Indication: B-CELL LYMPHOMA
     Route: 042
     Dates: start: 20110805
  7. RITUXIMAB [Concomitant]
     Dates: start: 20110901, end: 20110930
  8. VORICONAZOLE [Concomitant]
     Dates: start: 20110804

REACTIONS (3)
  - LIVER DISORDER [None]
  - PYREXIA [None]
  - RASH [None]
